FAERS Safety Report 26001246 (Version 1)
Quarter: 2025Q4

REPORT INFORMATION
  Report Type: Spontaneous
  Country: US (occurrence: US)
  Receive Date: 20251105
  Receipt Date: 20251105
  Transmission Date: 20260118
  Serious: Yes (Hospitalization)
  Sender: ITALFARMACO SPA
  Company Number: US-ITALFARMACO SPA-2187946

PATIENT
  Age: 19 Year
  Sex: Male
  Weight: 31.8 kg

DRUGS (11)
  1. DUVYZAT [Suspect]
     Active Substance: GIVINOSTAT
     Indication: Duchenne muscular dystrophy
     Dates: start: 20250814, end: 20251013
  2. DEFLAZACORT [Concomitant]
     Active Substance: DEFLAZACORT
  3. OMEGA 3 [Concomitant]
     Active Substance: CAPSAICIN
  4. ALENDRONATE [Concomitant]
     Active Substance: ALENDRONATE SODIUM
  5. COENZYME Q10 [Concomitant]
     Active Substance: DIETARY SUPPLEMENT\UBIDECARENONE
  6. VITAMIN C [Concomitant]
     Active Substance: ASCORBIC ACID
  7. VITAMIN D [Concomitant]
     Active Substance: VITAMIN D NOS
  8. VITAMINS [Concomitant]
     Active Substance: VITAMINS
  9. ATENOLOL [Concomitant]
     Active Substance: ATENOLOL
  10. EPLERENONE [Concomitant]
     Active Substance: EPLERENONE
  11. LISINOPRIL [Concomitant]
     Active Substance: LISINOPRIL

REACTIONS (3)
  - Lipoprotein (a) increased [Recovering/Resolving]
  - Platelet count decreased [Recovered/Resolved]
  - Cerebrovascular accident [Recovering/Resolving]

NARRATIVE: CASE EVENT DATE: 20251010
